FAERS Safety Report 18698977 (Version 1)
Quarter: 2021Q1

REPORT INFORMATION
  Report Type: Spontaneous
  Country: FR (occurrence: FR)
  Receive Date: 20210105
  Receipt Date: 20210105
  Transmission Date: 20210419
  Serious: Yes (Hospitalization, Other)
  Sender: FDA-Public Use
  Company Number: FR-AUROBINDO-AUR-APL-2020-064218

PATIENT
  Age: 13 Year
  Sex: Female

DRUGS (1)
  1. ALPRAZOLAM TABLETS [Suspect]
     Active Substance: ALPRAZOLAM
     Indication: PRODUCT USED FOR UNKNOWN INDICATION
     Dosage: 0.25 MILLIGRAM, 10 TABLETS
     Route: 065

REACTIONS (1)
  - Poisoning [Recovered/Resolved]
